FAERS Safety Report 5420942-8 (Version None)
Quarter: 2007Q3

REPORT INFORMATION
  Report Type: 
  Country: None (occurrence: None)
  Receive Date: 20070817
  Receipt Date: 20070817
  Transmission Date: 20080115
  Serious: Yes (Other)
  Sender: FDA-Public Use
  Company Number: None

PATIENT
  Age: 44 Year
  Sex: Female
  Weight: 56.6996 kg

DRUGS (1)
  1. YAZ [Suspect]
     Indication: CONTRACEPTION
     Dosage: 3 MG / 0.02 MG DAILY PO
     Route: 048
     Dates: start: 20070601, end: 20070801

REACTIONS (10)
  - FATIGUE [None]
  - FORMICATION [None]
  - HYPOAESTHESIA [None]
  - INSOMNIA [None]
  - MUSCLE SPASMS [None]
  - MUSCLE TWITCHING [None]
  - PAIN IN EXTREMITY [None]
  - POLLAKIURIA [None]
  - PRURITUS [None]
  - RESTLESS LEGS SYNDROME [None]
